FAERS Safety Report 5294365-9 (Version None)
Quarter: 2007Q2

REPORT INFORMATION
  Report Type: 
  Country: None (occurrence: None)
  Receive Date: 20070412
  Receipt Date: 20070405
  Transmission Date: 20071010
  Serious: Yes (Death, Hospitalization)
  Sender: FDA-Public Use
  Company Number: PHBS2007HR06060

PATIENT
  Age: 72 Year
  Sex: Male

DRUGS (2)
  1. LESCOL XL [Suspect]
     Indication: HYPERLIPIDAEMIA
     Dosage: 80 MG/D
     Route: 048
     Dates: start: 20070223, end: 20070225
  2. IRUZID [Concomitant]
     Dosage: 12.5/20 MG/D

REACTIONS (7)
  - BILE DUCT CANCER [None]
  - FAECES DISCOLOURED [None]
  - HEPATORENAL FAILURE [None]
  - JAUNDICE [None]
  - MALAISE [None]
  - PAPILLOMA [None]
  - VOMITING [None]
